FAERS Safety Report 6318898-9 (Version None)
Quarter: 2009Q3

REPORT INFORMATION
  Report Type: 
  Country: None (occurrence: None)
  Receive Date: 20090821
  Receipt Date: 20090821
  Transmission Date: 20100115
  Serious: Yes (Other)
  Sender: FDA-Public Use
  Company Number: FR-ABBOTT-09P-056-0584502-00

PATIENT
  Sex: Female

DRUGS (3)
  1. RITONAVIR SOFT GELATIN CAPSULES [Suspect]
     Indication: HIV INFECTION
     Dates: start: 20081208
  2. ISENTRESS [Suspect]
     Indication: HIV INFECTION
     Dates: start: 20081208
  3. PREZISTA [Suspect]
     Indication: HIV INFECTION
     Dates: start: 20081208

REACTIONS (1)
  - ABORTION [None]
